FAERS Safety Report 17020962 (Version 1)
Quarter: 2019Q4

REPORT INFORMATION
  Report Type: Spontaneous
  Country: US (occurrence: US)
  Receive Date: 20191112
  Receipt Date: 20191112
  Transmission Date: 20200122
  Serious: No
  Sender: FDA-Public Use
  Company Number: US-009507513-1910USA010670

PATIENT
  Age: 72 Year
  Sex: Female

DRUGS (4)
  1. FLONASE [Concomitant]
     Active Substance: FLUTICASONE PROPIONATE
     Dosage: UNK
  2. ASMANEX [Suspect]
     Active Substance: MOMETASONE FUROATE
     Indication: HYPERSENSITIVITY
     Dosage: 1 INHALATION/TWICE DAILY
     Route: 055
  3. ASMANEX [Suspect]
     Active Substance: MOMETASONE FUROATE
     Dosage: 1 INHALATION/TWICE DAILY
     Route: 055
     Dates: start: 20191001
  4. ALLEGRA [Concomitant]
     Active Substance: FEXOFENADINE HYDROCHLORIDE
     Dosage: UNK

REACTIONS (13)
  - Heart rate increased [Not Recovered/Not Resolved]
  - Food allergy [Not Recovered/Not Resolved]
  - Hypersensitivity [Not Recovered/Not Resolved]
  - Poor quality device used [Unknown]
  - Allergy to plants [Not Recovered/Not Resolved]
  - Product quality issue [Unknown]
  - Product use in unapproved indication [Unknown]
  - Multiple allergies [Not Recovered/Not Resolved]
  - Seasonal allergy [Not Recovered/Not Resolved]
  - Dust allergy [Not Recovered/Not Resolved]
  - Thyroid disorder [Not Recovered/Not Resolved]
  - Allergy to animal [Not Recovered/Not Resolved]
  - Allergy to chemicals [Not Recovered/Not Resolved]

NARRATIVE: CASE EVENT DATE: 20191012
